FAERS Safety Report 4552855-8 (Version None)
Quarter: 2005Q1

REPORT INFORMATION
  Report Type: 
  Country: None (occurrence: None)
  Receive Date: 20050111
  Receipt Date: 20050111
  Transmission Date: 20050727
  Serious: No
  Sender: FDA-Public Use
  Company Number: None

PATIENT
  Age: 43 Year
  Sex: Female
  Weight: 80.7403 kg

DRUGS (2)
  1. BUSPAR [Suspect]
     Indication: ANXIETY
     Dosage: 1 10MG @ BEDTIME
  2. BUSPAR [Suspect]
     Indication: PANIC ATTACK
     Dosage: 1 10MG @ BEDTIME

REACTIONS (4)
  - DIZZINESS [None]
  - DYSPNOEA [None]
  - SYNCOPE [None]
  - URTICARIA [None]
